FAERS Safety Report 20844448 (Version 1)
Quarter: 2022Q2

REPORT INFORMATION
  Report Type: Spontaneous
  Country: FR (occurrence: FR)
  Receive Date: 20220518
  Receipt Date: 20220518
  Transmission Date: 20220721
  Serious: Yes (Other)
  Sender: FDA-Public Use
  Company Number: FR-VERTEX PHARMACEUTICALS-2022-007245

PATIENT
  Sex: Male

DRUGS (4)
  1. ELEXACAFTOR\IVACAFTOR\TEZACAFTOR [Suspect]
     Active Substance: ELEXACAFTOR\IVACAFTOR\TEZACAFTOR
     Indication: Cystic fibrosis
     Dosage: UNK
     Route: 048
     Dates: start: 20210813
  2. ELEXACAFTOR\IVACAFTOR\TEZACAFTOR [Suspect]
     Active Substance: ELEXACAFTOR\IVACAFTOR\TEZACAFTOR
     Dosage: ALTERNATION 1 DAY OUT OF 2 BETWEEN KAFTRIO AND KALYDECO
     Route: 048
     Dates: start: 20211115
  3. KALYDECO [Suspect]
     Active Substance: IVACAFTOR
     Indication: Cystic fibrosis
     Dosage: UNK
     Route: 048
     Dates: start: 20210813
  4. KALYDECO [Suspect]
     Active Substance: IVACAFTOR
     Dosage: ALTERNATION 1 DAY OUT OF 2 BETWEEN KAFTRIO AND KALYDECO
     Route: 048
     Dates: start: 20211115

REACTIONS (3)
  - Hepatic cirrhosis [Unknown]
  - Thrombocytopenia [Unknown]
  - Portal hypertension [Unknown]
